FAERS Safety Report 5219192-X (Version None)
Quarter: 2007Q1

REPORT INFORMATION
  Report Type: 
  Country: None (occurrence: None)
  Receive Date: 20070125
  Receipt Date: 20070117
  Transmission Date: 20070707
  Serious: Yes (Other)
  Sender: FDA-Public Use
  Company Number: 2006UW28281

PATIENT
  Age: 59 Year
  Sex: Female
  Weight: 79.4 kg

DRUGS (4)
  1. ARIMIDEX [Suspect]
     Indication: BREAST CANCER
     Route: 048
     Dates: start: 20030901, end: 20041201
  2. MULTI-VITAMIN [Concomitant]
  3. CALCIUM [Concomitant]
  4. WELLBUTRIN [Concomitant]

REACTIONS (4)
  - BONE PAIN [None]
  - HOT FLUSH [None]
  - PLANTAR FASCIITIS [None]
  - TENDONITIS [None]
